FAERS Safety Report 8688971 (Version 2)
Quarter: 2013Q4

REPORT INFORMATION
  Report Type: Spontaneous
  Country: US (occurrence: US)
  Receive Date: 20120727
  Receipt Date: 20131203
  Transmission Date: 20140711
  Serious: No
  Sender: FDA-Public Use
  Company Number: US-ASTRAZENECA-2011SE72447

PATIENT
  Age: 51 Year
  Sex: Female
  Weight: 66.7 kg

DRUGS (11)
  1. SEROQUEL XR [Suspect]
     Indication: BIPOLAR DISORDER
     Route: 048
  2. SEROQUEL XR [Suspect]
     Indication: BIPOLAR DISORDER
     Route: 048
     Dates: start: 2005
  3. SEROQUEL XR [Suspect]
     Indication: BIPOLAR DISORDER
     Route: 048
  4. LITHIUM [Suspect]
     Route: 065
  5. COMPAZINE [Suspect]
     Route: 065
  6. DOCULACE [Concomitant]
     Indication: FAECES HARD
     Route: 048
     Dates: start: 2012
  7. LAMOTRIGINE [Concomitant]
     Indication: PSYCHOTIC DISORDER
     Route: 048
     Dates: start: 2012
  8. ASPIRIN [Concomitant]
     Indication: CHEST PAIN
     Route: 048
  9. PEPCID [Concomitant]
     Indication: ULCER
     Route: 048
     Dates: start: 2011
  10. LORAZEPAM [Concomitant]
     Indication: ANXIETY
     Route: 048
  11. PRAVASTATIN [Concomitant]
     Indication: BLOOD CHOLESTEROL ABNORMAL
     Route: 048
     Dates: start: 201305

REACTIONS (8)
  - Malaise [Unknown]
  - Feeling abnormal [Unknown]
  - Ulcer [Unknown]
  - Eyelid disorder [Unknown]
  - Lactation disorder [Unknown]
  - Blood cholesterol increased [Unknown]
  - Off label use [Unknown]
  - Drug intolerance [Unknown]
